FAERS Safety Report 9237444 (Version 1)
Quarter: 2013Q2

REPORT INFORMATION
  Report Type: Spontaneous
  Country: IT (occurrence: IT)
  Receive Date: 20130417
  Receipt Date: 20130417
  Transmission Date: 20140414
  Serious: Yes (Hospitalization)
  Sender: FDA-Public Use
  Company Number: IT-FRI-1000044351

PATIENT
  Age: 77 Year
  Sex: Female

DRUGS (9)
  1. NEBIVOLOL [Suspect]
     Indication: CARDIAC FAILURE
     Dosage: 2.5 MG
     Route: 048
     Dates: start: 20120101, end: 20121203
  2. PERINDOPRIL [Suspect]
     Indication: CORONARY ARTERY DISEASE
     Dosage: 10 MG
     Route: 048
     Dates: start: 20120101, end: 20121203
  3. TICLOPIDINE [Concomitant]
     Route: 048
     Dates: start: 20120101, end: 20121203
  4. VENITRIN [Concomitant]
     Route: 062
     Dates: start: 20120101, end: 20121203
  5. PARIET [Concomitant]
     Route: 048
     Dates: start: 20120101, end: 20121203
  6. NOVONORM [Concomitant]
     Route: 048
     Dates: start: 20120101, end: 20121203
  7. TIMOPTOL [Concomitant]
     Route: 047
     Dates: start: 20120101, end: 20121203
  8. VICTOZA [Concomitant]
     Route: 058
     Dates: start: 20120101, end: 20121203
  9. TOTALIP [Concomitant]
     Route: 048
     Dates: start: 20120101, end: 20121203

REACTIONS (2)
  - Renal impairment [Recovering/Resolving]
  - Bradycardia [Recovering/Resolving]
